FAERS Safety Report 8400309-0 (Version None)
Quarter: 2012Q2

REPORT INFORMATION
  Report Type: 
  Country: None (occurrence: None)
  Receive Date: 20120531
  Receipt Date: 20120522
  Transmission Date: 20120825
  Serious: Yes (Hospitalization)
  Sender: FDA-Public Use
  Company Number: JP-BAXTER-2012BAX006825

PATIENT
  Age: 65 Year
  Sex: Female

DRUGS (3)
  1. PIRFENIDONE [Suspect]
     Indication: IDIOPATHIC PULMONARY FIBROSIS
     Route: 048
  2. PREDNISOLONE [Suspect]
  3. CYCLOPHOSPHAMIDE [Suspect]

REACTIONS (1)
  - OPPORTUNISTIC INFECTION [None]
